FAERS Safety Report 8853718 (Version 3)
Quarter: 2012Q4

REPORT INFORMATION
  Report Type: 
  Country: JP (occurrence: JP)
  Receive Date: 20121022
  Receipt Date: 20121128
  Transmission Date: 20130627
  Serious: Yes (Other)
  Sender: FDA-Public Use
  Company Number: JP-009507513-1210JPN008289

PATIENT
  Age: 65 Year
  Sex: Male
  Weight: 56 kg

DRUGS (4)
  1. PEGINTRON [Suspect]
     Indication: HEPATITIS C
     Dosage: 1.5 Microgram per kilogram, UNK
     Route: 058
     Dates: start: 20121001
  2. REBETOL [Suspect]
     Indication: HEPATITIS C
     Dosage: 800 mg, UNK
     Route: 048
     Dates: start: 20121001
  3. TELAVIC [Suspect]
     Indication: HEPATITIS C
     Dosage: 2250 mg, qd
     Route: 048
     Dates: start: 20121001, end: 20121003
  4. TELAVIC [Suspect]
     Dosage: 1500 mg, qd
     Route: 048
     Dates: start: 20121004

REACTIONS (1)
  - Renal impairment [Recovered/Resolved]
